FAERS Safety Report 7993012-2 (Version None)
Quarter: 2011Q4

REPORT INFORMATION
  Report Type: 
  Country: None (occurrence: None)
  Receive Date: 20111219
  Receipt Date: 20110303
  Transmission Date: 20120403
  Serious: No
  Sender: FDA-Public Use
  Company Number: US-ASTRAZENECA-2011SE08209

PATIENT
  Age: 736 Month
  Sex: Male

DRUGS (12)
  1. CRESTOR [Suspect]
     Indication: BLOOD CHOLESTEROL INCREASED
     Route: 048
     Dates: start: 20110208, end: 20110211
  2. DIOVAN HCT [Concomitant]
  3. MV [Concomitant]
  4. POTASSIUM CHLORIDE [Concomitant]
  5. LORAZEPAM [Concomitant]
  6. D2 [Concomitant]
  7. CITALOPRAM [Concomitant]
  8. JANUVIA [Concomitant]
  9. ASPIRIN [Concomitant]
  10. FISH OIL [Concomitant]
  11. PRANDIN [Concomitant]
  12. CIALIS [Concomitant]

REACTIONS (6)
  - INSOMNIA [None]
  - BONE PAIN [None]
  - BLOOD GLUCOSE INCREASED [None]
  - DIARRHOEA [None]
  - SINUSITIS [None]
  - MYALGIA [None]
